FAERS Safety Report 12707236 (Version 1)
Quarter: 2016Q3

REPORT INFORMATION
  Report Type: Report from Study
  Country: AU (occurrence: AU)
  Receive Date: 20160901
  Receipt Date: 20160901
  Transmission Date: 20161109
  Serious: Yes (Other)
  Sender: FDA-Public Use
  Company Number: AU-REGENERON PHARMACEUTICALS, INC.-2016-21138

PATIENT

DRUGS (2)
  1. EYLEA [Suspect]
     Active Substance: AFLIBERCEPT
     Indication: NEOVASCULAR AGE-RELATED MACULAR DEGENERATION
     Dosage: 2 MG, 5 WEEKLY (TOTAL NUMBER OF INJECTIONS NOT PROVIDED)
     Route: 031
     Dates: start: 20160309
  2. EYLEA [Suspect]
     Active Substance: AFLIBERCEPT
     Dosage: 2 MG (LAST DOSE PRIOR TO ONE OF THE EVENTS)
     Route: 031
     Dates: start: 20160822, end: 20160822

REACTIONS (7)
  - Product use issue [Unknown]
  - Ocular hyperaemia [Recovering/Resolving]
  - Eye swelling [Recovering/Resolving]
  - Foreign body sensation in eyes [Recovering/Resolving]
  - Injection site discomfort [Recovering/Resolving]
  - Lacrimation increased [Recovering/Resolving]
  - Pain [Unknown]

NARRATIVE: CASE EVENT DATE: 20160309
